FAERS Safety Report 6997939-X (Version None)
Quarter: 2010Q3

REPORT INFORMATION
  Report Type: 
  Country: None (occurrence: None)
  Receive Date: 20100920
  Receipt Date: 20100907
  Transmission Date: 20110219
  Serious: Yes (Other)
  Sender: FDA-Public Use
  Company Number: US-CELGENEUS-163-50794-10091201

PATIENT

DRUGS (2)
  1. VIDAZA [Suspect]
     Indication: ACUTE MYELOID LEUKAEMIA
     Route: 058
  2. VIDAZA [Suspect]
     Route: 058

REACTIONS (4)
  - COLITIS [None]
  - HEADACHE [None]
  - NEUTROPENIA [None]
  - THROMBOCYTOPENIA [None]
